FAERS Safety Report 21757733 (Version 1)
Quarter: 2022Q4

REPORT INFORMATION
  Report Type: Spontaneous
  Country: US (occurrence: None)
  Receive Date: 20221221
  Receipt Date: 20221221
  Transmission Date: 20230113
  Serious: Yes (Other)
  Sender: FDA-Public Use
  Company Number: US-ROCHE-2874646

PATIENT
  Age: 84 Year
  Sex: Male

DRUGS (1)
  1. ACTIVASE [Suspect]
     Active Substance: ALTEPLASE
     Indication: Aphasia
     Dosage: DILUENT LOT - 13-143DK AND 19-211DK AND ONE TIME 0.9 MG/KG BOLUS
     Route: 042
     Dates: start: 20210718, end: 20210718

REACTIONS (4)
  - Haemorrhage [Unknown]
  - Cough [Unknown]
  - Wheezing [Unknown]
  - Dyspnoea [Recovered/Resolved]

NARRATIVE: CASE EVENT DATE: 20210720
